FAERS Safety Report 4632068-1 (Version None)
Quarter: 2005Q2

REPORT INFORMATION
  Report Type: 
  Country: None (occurrence: None)
  Receive Date: 20050331
  Receipt Date: 20040302
  Transmission Date: 20051028
  Serious: Yes (Other)
  Sender: FDA-Public Use
  Company Number: 200411091BCC

PATIENT
  Sex: Male
  Weight: 74.8435 kg

DRUGS (6)
  1. ALEVE [Suspect]
     Indication: RHEUMATOID ARTHRITIS
     Dosage: 220 MG, BID, ORAL
     Route: 048
     Dates: start: 20031201, end: 20040501
  2. HYDROXYCHLOROQUINE SULFATE [Concomitant]
  3. BETADERM [Concomitant]
  4. VENTOLIN /00139501/ [Concomitant]
  5. FLOVENT [Concomitant]
  6. ASPIRIN [Concomitant]

REACTIONS (1)
  - BLOOD URINE PRESENT [None]
